FAERS Safety Report 6078253-6 (Version None)
Quarter: 2009Q1

REPORT INFORMATION
  Report Type: 
  Country: None (occurrence: None)
  Receive Date: 20090213
  Receipt Date: 20090203
  Transmission Date: 20090719
  Serious: Yes (Death)
  Sender: FDA-Public Use
  Company Number: PE-PFIZER INC-2009165708

PATIENT

DRUGS (1)
  1. NORVASC [Suspect]
     Indication: HYPERTENSION
     Dates: start: 20080808

REACTIONS (1)
  - DEATH [None]
